FAERS Safety Report 10407013 (Version 1)
Quarter: 2014Q3

REPORT INFORMATION
  Report Type: Spontaneous
  Country: AU (occurrence: None)
  Receive Date: 20140821
  Receipt Date: 20140821
  Transmission Date: 20150326
  Serious: Yes (Hospitalization)
  Sender: FDA-Public Use
  Company Number: IMP_07845_2014

PATIENT
  Age: 68 Year
  Sex: Female

DRUGS (8)
  1. GLICLAZIDE [Concomitant]
     Active Substance: GLICLAZIDE
  2. AMLODIPINE [Concomitant]
     Active Substance: AMLODIPINE BESYLATE
  3. IRBESARTAN (IRBESARTAN) [Suspect]
     Active Substance: IRBESARTAN
     Indication: HYPERTENSION
  4. INDAPAMID [Suspect]
     Active Substance: INDAPAMIDE
     Indication: HYPERTENSION
  5. SODIUM PICOSULPHATE (SODIUM PICOSULPHATE) (SODIUM PICOSULPHATE) [Suspect]
     Active Substance: SODIUM PICOSULFATE
     Indication: COLONOSCOPY
     Dosage: (DF)
  6. MELOXICAM. [Concomitant]
     Active Substance: MELOXICAM
  7. METFORMIN [Suspect]
     Active Substance: METFORMIN HYDROCHLORIDE
     Indication: TYPE 2 DIABETES MELLITUS
     Dosage: 750 MG, AFTER THE COLONOSCOPY?
  8. ISOPHANE INSULIN [Concomitant]
     Active Substance: INSULIN NOS

REACTIONS (7)
  - Dehydration [None]
  - Renal failure acute [None]
  - Diarrhoea [None]
  - Blood sodium decreased [None]
  - Lactic acidosis [None]
  - Vomiting [None]
  - Blood pressure decreased [None]
